FAERS Safety Report 4689880-2 (Version None)
Quarter: 2005Q2

REPORT INFORMATION
  Report Type: 
  Country: None (occurrence: None)
  Receive Date: 20050614
  Receipt Date: 20050607
  Transmission Date: 20051028
  Serious: Yes (Hospitalization)
  Sender: FDA-Public Use
  Company Number: US-GLAXOSMITHKLINE-A0561530A

PATIENT
  Age: 69 Year
  Sex: Female

DRUGS (2)
  1. ECOTRIN REGULAR STRENGTH TABLETS [Suspect]
     Indication: THROMBOSIS PROPHYLAXIS
     Route: 048
     Dates: start: 19970101
  2. OS-CAL 500+D TABLETS [Suspect]
     Indication: MINERAL SUPPLEMENTATION
     Route: 048
     Dates: start: 20050101

REACTIONS (6)
  - BACK DISORDER [None]
  - BLINDNESS UNILATERAL [None]
  - CARDIAC DISORDER [None]
  - EYE HAEMORRHAGE [None]
  - VASCULAR RUPTURE [None]
  - WEIGHT INCREASED [None]
